FAERS Safety Report 18570413 (Version 1)
Quarter: 2020Q4

REPORT INFORMATION
  Report Type: Spontaneous
  Country: US (occurrence: US)
  Receive Date: 20201202
  Receipt Date: 20201202
  Transmission Date: 20210114
  Serious: No
  Sender: FDA-Public Use
  Company Number: US-PFIZER INC-2020467741

PATIENT
  Age: 61 Year
  Sex: Female
  Weight: 122.47 kg

DRUGS (2)
  1. KETOROLAC TROMETHAMINE. [Suspect]
     Active Substance: KETOROLAC TROMETHAMINE
     Indication: HEADACHE
     Dosage: GIVEN TO HER IN AN ARM
     Dates: start: 202008
  2. KETOROLAC TROMETHAMINE. [Suspect]
     Active Substance: KETOROLAC TROMETHAMINE
     Dosage: INJECTION ONCE IN THE NECK
     Dates: start: 20200814, end: 20200814

REACTIONS (3)
  - Frustration tolerance decreased [Recovering/Resolving]
  - Product administered at inappropriate site [Recovering/Resolving]
  - Injection site pain [Recovering/Resolving]

NARRATIVE: CASE EVENT DATE: 20200814
